FAERS Safety Report 24867836 (Version 1)
Quarter: 2025Q1

REPORT INFORMATION
  Report Type: Spontaneous
  Country: US (occurrence: None)
  Receive Date: 20250117
  Receipt Date: 20250117
  Transmission Date: 20250409
  Serious: No
  Sender: FDA-CTU
  Company Number: None

PATIENT
  Age: 65 Year
  Sex: Male

DRUGS (1)
  1. CEQUA [Suspect]
     Active Substance: CYCLOSPORINE
     Dosage: 1 GTT DROP TWICE A DAY OPHTHALMIC ?
     Route: 047

REACTIONS (4)
  - Eye irritation [None]
  - Instillation site irritation [None]
  - Instillation site irritation [None]
  - Headache [None]

NARRATIVE: CASE EVENT DATE: 20250108
